FAERS Safety Report 5266074-3 (Version None)
Quarter: 2007Q1

REPORT INFORMATION
  Report Type: 
  Country: None (occurrence: None)
  Receive Date: 20070315
  Receipt Date: 20070312
  Transmission Date: 20070707
  Serious: Yes (Other)
  Sender: FDA-Public Use
  Company Number: US-BRISTOL-MYERS SQUIBB COMPANY-13659404

PATIENT
  Age: 76 Year
  Sex: Male
  Weight: 62 kg

DRUGS (8)
  1. CARDIOLITE [Suspect]
     Indication: ARRHYTHMIA
     Route: 042
     Dates: start: 20070124, end: 20070124
  2. CARDIOLITE [Suspect]
     Indication: TACHYCARDIA
     Route: 042
     Dates: start: 20070124, end: 20070124
  3. ASPIRIN [Concomitant]
  4. FOLIC ACID [Concomitant]
  5. VYTORIN [Concomitant]
  6. FOLATE [Concomitant]
  7. B12 [Concomitant]
  8. MULTI-VITAMIN [Concomitant]

REACTIONS (2)
  - ANXIETY [None]
  - BLOOD PRESSURE INCREASED [None]
